FAERS Safety Report 8243318-7 (Version None)
Quarter: 2012Q1

REPORT INFORMATION
  Report Type: 
  Country: None (occurrence: None)
  Receive Date: 20120315
  Receipt Date: 20100427
  Transmission Date: 20120608
  Serious: No
  Sender: FDA-Public Use
  Company Number: PHHY2010US27165

PATIENT
  Age: 50 Year
  Sex: Male
  Weight: 84.4 kg

DRUGS (4)
  1. FANAPT [Suspect]
     Indication: SCHIZOPHRENIA
     Dosage: 6 MG, BID, ORAL
     Route: 048
     Dates: start: 20100202, end: 20100413
  2. SEROQUEL [Concomitant]
  3. ABILIFY [Concomitant]
  4. RESTORIL [Concomitant]

REACTIONS (1)
  - WEIGHT INCREASED [None]
